FAERS Safety Report 18673824 (Version 2)
Quarter: 2023Q4

REPORT INFORMATION
  Report Type: Spontaneous
  Country: PL (occurrence: PL)
  Receive Date: 20201229
  Receipt Date: 20231229
  Transmission Date: 20240109
  Serious: Yes (Other)
  Sender: FDA-Public Use
  Company Number: PL-002147023-NVSC2020PL334166

PATIENT
  Age: 58 Year
  Sex: Female

DRUGS (5)
  1. RAMIPRIL [Suspect]
     Active Substance: RAMIPRIL
     Indication: Hypertension
     Dosage: 10 MG, UNKNOWN
     Route: 065
  2. METFORMIN [Suspect]
     Active Substance: METFORMIN HYDROCHLORIDE
     Indication: Type 2 diabetes mellitus
     Dosage: 500 MG, TID
     Route: 065
  3. DOXORUBICIN [Suspect]
     Active Substance: DOXORUBICIN
     Indication: Product used for unknown indication
     Dosage: UNK
     Route: 065
  4. FLUOROURACIL [Suspect]
     Active Substance: FLUOROURACIL
     Indication: Product used for unknown indication
     Dosage: UNK
     Route: 065
  5. TAMOXIFEN [Concomitant]
     Active Substance: TAMOXIFEN
     Indication: Product used for unknown indication
     Dosage: UNK (FOR 5 YEARS)
     Route: 065

REACTIONS (16)
  - Metastases to lung [Unknown]
  - Hepatotoxicity [Recovered/Resolved]
  - Metastases to spine [Unknown]
  - Metastases to bone [Unknown]
  - Femur fracture [Unknown]
  - Neutropenia [Recovering/Resolving]
  - Invasive breast carcinoma [Unknown]
  - Weight decreased [Unknown]
  - Bone pain [Recovering/Resolving]
  - Breast pain [Unknown]
  - Bone lesion [Unknown]
  - Breast mass [Unknown]
  - Asthenia [Unknown]
  - Anaemia [Unknown]
  - Alanine aminotransferase increased [Unknown]
  - Aspartate aminotransferase increased [Unknown]

NARRATIVE: CASE EVENT DATE: 20190901
